FAERS Safety Report 7483129-3 (Version None)
Quarter: 2011Q2

REPORT INFORMATION
  Report Type: 
  Country: None (occurrence: None)
  Receive Date: 20110516
  Receipt Date: 20110511
  Transmission Date: 20111010
  Serious: Yes (Hospitalization)
  Sender: FDA-Public Use
  Company Number: FR-MERCK-1102FRA00163

PATIENT
  Age: 62 Year
  Sex: Female

DRUGS (9)
  1. SERTRALINE HYDROCHLORIDE [Concomitant]
     Route: 065
  2. TRIMETAZIDINE HYDROCHLORIDE [Concomitant]
     Route: 065
  3. ACEPROMETAZINE MALEATE AND MEPROBAMATE [Concomitant]
     Route: 065
  4. SITAGLIPTIN PHOSPHATE [Concomitant]
     Indication: TYPE 2 DIABETES MELLITUS
     Route: 048
     Dates: start: 20101014, end: 20110118
  5. JANUMET [Suspect]
     Indication: TYPE 2 DIABETES MELLITUS
     Route: 048
     Dates: start: 20110119
  6. ROSUVASTATIN CALCIUM [Concomitant]
     Indication: HYPERCHOLESTEROLAEMIA
     Route: 065
  7. OXAZEPAM [Concomitant]
     Route: 065
  8. AVOCADO-SOYBEAN UNSAPONIFIABLE LIPIDS [Concomitant]
     Route: 065
  9. ACETYLLEUCINE [Concomitant]
     Indication: VERTIGO
     Route: 065

REACTIONS (2)
  - THIRST DECREASED [None]
  - DEPRESSION [None]
